FAERS Safety Report 7730413-1 (Version None)
Quarter: 2011Q3

REPORT INFORMATION
  Report Type: 
  Country: None (occurrence: None)
  Receive Date: 20110906
  Receipt Date: 20110826
  Transmission Date: 20111222
  Serious: Yes (Other)
  Sender: FDA-Public Use
  Company Number: DE-UCBSA-035870

PATIENT
  Age: 51 Year
  Sex: Male
  Weight: 95 kg

DRUGS (10)
  1. PREDNISOLONE [Concomitant]
     Indication: RHEUMATOID ARTHRITIS
     Route: 048
     Dates: start: 20101101
  2. CETIRIZINE HCL [Concomitant]
     Indication: HYPERSENSITIVITY
     Dosage: SINCE BEFORE 2003
     Route: 048
  3. RAMIPRIL [Concomitant]
     Indication: HYPERTENSION
     Route: 048
     Dates: start: 20100701
  4. CIMZIA [Suspect]
     Indication: RHEUMATOID ARTHRITIS
     Route: 058
     Dates: start: 20101220
  5. BISOPROLOL FUMARATE [Concomitant]
     Route: 048
     Dates: start: 20100701
  6. PREDNISOLONE [Concomitant]
     Route: 048
     Dates: start: 20030101
  7. ARAVA [Concomitant]
     Indication: RHEUMATOID ARTHRITIS
     Dosage: DAILY
     Route: 048
     Dates: start: 20050401
  8. CA D3 [Concomitant]
     Indication: OSTEOPOROSIS PROPHYLAXIS
     Dosage: 1000/800 MG, IE, DAILY
     Route: 048
     Dates: start: 20030101
  9. CETIRIZINE HCL [Concomitant]
     Indication: URTICARIA
     Dosage: SINCE BEFORE 2003
     Route: 048
  10. IBUPROFEN [Concomitant]
     Indication: RHEUMATOID ARTHRITIS
     Route: 048
     Dates: start: 20030101

REACTIONS (1)
  - TYPE 2 DIABETES MELLITUS [None]
